FAERS Safety Report 17491466 (Version 1)
Quarter: 2020Q1

REPORT INFORMATION
  Report Type: Spontaneous
  Country: US (occurrence: US)
  Receive Date: 20200304
  Receipt Date: 20200304
  Transmission Date: 20200409
  Serious: No
  Sender: FDA-Public Use
  Company Number: US-CIPLA LTD.-2019US08429

PATIENT

DRUGS (7)
  1. RITONAVIR. [Suspect]
     Active Substance: RITONAVIR
     Indication: HIV INFECTION
     Dosage: 1 DOSAGE FORM (TABS/CAPS) DAILY (1 COURSE)
     Route: 048
     Dates: start: 20181212
  2. EMTRICITABINE/TENOFOVIR [Suspect]
     Active Substance: EMTRICITABINE\TENOFOVIR
     Dosage: 4 DOSAGE FORM (TABS/CAPS) DAILY (2 COURSE)
     Route: 048
     Dates: start: 20190410
  3. ATAZANAVIR. [Suspect]
     Active Substance: ATAZANAVIR
     Indication: HIV INFECTION
     Dosage: 1 DOSAGE FORM (TABS/CAPS) DAILY (1 COURSE)
     Route: 048
     Dates: start: 20181212
  4. RETROVIR [Suspect]
     Active Substance: ZIDOVUDINE
     Indication: HIV INFECTION
     Dosage: 2 MG/KG/HR (1 COURSE)
     Route: 042
     Dates: start: 20190520, end: 20190520
  5. EMTRICITABINE/TENOFOVIR [Suspect]
     Active Substance: EMTRICITABINE\TENOFOVIR
     Indication: HIV INFECTION
     Dosage: 1 DOSAGE FORM (TABS/CAPS) DAILY (1 COURSE)
     Route: 048
     Dates: start: 20181212, end: 20190410
  6. RETROVIR [Suspect]
     Active Substance: ZIDOVUDINE
     Dosage: 1 MG/KG/HR (2 COURSE)
     Route: 042
     Dates: start: 20190520, end: 20190520
  7. COCAINE [Suspect]
     Active Substance: COCAINE
     Indication: PRODUCT USED FOR UNKNOWN INDICATION
     Dosage: UNK
     Route: 065

REACTIONS (2)
  - Exposure during pregnancy [Unknown]
  - No adverse event [Unknown]
